FAERS Safety Report 7270538-0 (Version None)
Quarter: 2011Q1

REPORT INFORMATION
  Report Type: 
  Country: None (occurrence: None)
  Receive Date: 20110202
  Receipt Date: 20110126
  Transmission Date: 20110831
  Serious: Yes (Hospitalization, Other)
  Sender: FDA-Public Use
  Company Number: US-AMGEN-QUU416510

PATIENT
  Age: 23 Year
  Sex: Female

DRUGS (9)
  1. OXYCODONE HCL [Concomitant]
  2. PHENERGAN HCL [Concomitant]
  3. NPLATE [Suspect]
     Dates: start: 20100513
  4. CORTICOSTEROIDS [Concomitant]
     Dosage: UNK
     Dates: start: 20100409
  5. ATIVAN [Concomitant]
  6. COUMADIN [Concomitant]
  7. FOLIC ACID [Concomitant]
  8. NPLATE [Suspect]
     Indication: IDIOPATHIC THROMBOCYTOPENIC PURPURA
     Dosage: 2 A?G/KG, UNK
     Dates: start: 20100513
  9. ARIXTRA [Concomitant]

REACTIONS (14)
  - POSTOPERATIVE THROMBOSIS [None]
  - RUPTURED ECTOPIC PREGNANCY [None]
  - DYSPNOEA [None]
  - CARDIOMYOPATHY [None]
  - PLEURISY [None]
  - PARAESTHESIA [None]
  - TROPONIN INCREASED [None]
  - WHITE BLOOD CELL COUNT INCREASED [None]
  - CHEST PAIN [None]
  - BLOOD CREATINE PHOSPHOKINASE INCREASED [None]
  - PULMONARY EMBOLISM [None]
  - NICOTINE DEPENDENCE [None]
  - MYOCARDITIS [None]
  - ANAEMIA [None]
